FAERS Safety Report 10190739 (Version 3)
Quarter: 2015Q1

REPORT INFORMATION
  Report Type: Spontaneous
  Country: JP (occurrence: JP)
  Receive Date: 20140523
  Receipt Date: 20150226
  Transmission Date: 20150720
  Serious: Yes (Hospitalization, Other)
  Sender: FDA-Public Use
  Company Number: JP-009507513-1403JPN001335

PATIENT
  Age: 62 Year
  Sex: Female

DRUGS (4)
  1. MUSCULAX [Concomitant]
     Active Substance: VECURONIUM BROMIDE
     Dosage: UNK, DAILY DOSAGE/DOSE UNKNOWN
     Route: 042
  2. ULTIVA [Concomitant]
     Active Substance: REMIFENTANIL HYDROCHLORIDE
     Indication: INDUCTION OF ANAESTHESIA
     Dosage: 0.3 MICROGRAM/KG/MIN, DAILY DOSE UNKNOWN
     Route: 041
     Dates: start: 20140228
  3. ESLAX [Suspect]
     Active Substance: ROCURONIUM BROMIDE
     Indication: NEUROMUSCULAR BLOCKING THERAPY
     Dosage: 40 MG, ONCE DAILY(STRENGHT 50MG/5.0ML)
     Route: 042
     Dates: start: 20140228, end: 20140228
  4. DIPRIVAN [Concomitant]
     Active Substance: PROPOFOL
     Indication: INDUCTION OF ANAESTHESIA
     Dosage: 40 MG, QD, DIVIDED DOSE FREQUENCY UNKNOWN
     Route: 051
     Dates: start: 20140228

REACTIONS (2)
  - Endotracheal intubation [Recovered/Resolved]
  - Anaphylactic shock [Recovered/Resolved]

NARRATIVE: CASE EVENT DATE: 20140228
